FAERS Safety Report 20877726 (Version 1)
Quarter: 2022Q2

REPORT INFORMATION
  Report Type: Spontaneous
  Country: US (occurrence: None)
  Receive Date: 20220526
  Receipt Date: 20220526
  Transmission Date: 20220721
  Serious: No
  Sender: FDA-Public Use
  Company Number: None

PATIENT
  Sex: Female

DRUGS (1)
  1. CUVPOSA [Suspect]
     Active Substance: GLYCOPYRROLATE
     Indication: Pseudomonas infection
     Dosage: FREQUENCY : 3 TIMES A DAY;?
     Dates: start: 202112

REACTIONS (3)
  - Heart rate decreased [None]
  - Body temperature decreased [None]
  - Overdose [None]
